FAERS Safety Report 12984100 (Version 2)
Quarter: 2016Q4

REPORT INFORMATION
  Report Type: Spontaneous
  Country: JP (occurrence: JP)
  Receive Date: 20161129
  Receipt Date: 20161130
  Transmission Date: 20170207
  Serious: Yes (Life-Threatening, Other)
  Sender: FDA-Public Use
  Company Number: JP-MYLANLABS-2016M1031592

PATIENT

DRUGS (15)
  1. CARBOPLATIN MYLAN [Suspect]
     Active Substance: CARBOPLATIN
     Indication: MALIGNANT PERITONEAL NEOPLASM
     Dosage: 650 MG, CYCLE
     Route: 041
     Dates: start: 20160624, end: 20160624
  2. PACLITAXEL. [Suspect]
     Active Substance: PACLITAXEL
     Dosage: 245 MG, CYCLE
     Route: 041
     Dates: start: 20160825, end: 20160825
  3. PYDOXAL [Concomitant]
     Active Substance: PYRIDOXAL
     Indication: NEUROPATHY PERIPHERAL
     Dosage: 10 MG, TID
     Route: 048
     Dates: start: 20160704
  4. MAGMITT [Concomitant]
     Active Substance: MAGNESIUM OXIDE
     Indication: CONSTIPATION
     Dosage: 330 MG, TID
     Route: 048
     Dates: start: 20160527
  5. LYRICA [Concomitant]
     Active Substance: PREGABALIN
     Indication: NEURALGIA
     Dosage: 25 MG, BID
     Route: 048
     Dates: start: 20160704
  6. DEXART [Concomitant]
     Active Substance: DEXAMETHASONE SODIUM PHOSPHATE
     Indication: PREMEDICATION
     Dosage: 19.8 MG, QD
     Route: 041
     Dates: start: 20160624, end: 20160624
  7. POLARAMINE [Concomitant]
     Active Substance: DEXCHLORPHENIRAMINE MALEATE
     Indication: URTICARIA
     Dosage: 5 MG, QD
     Route: 041
     Dates: start: 20160624, end: 20160624
  8. REBAMIPIDE [Concomitant]
     Active Substance: REBAMIPIDE
     Indication: CHRONIC GASTRITIS
     Dosage: 100 MG, TID
     Route: 048
     Dates: start: 20160526
  9. RANITIDINE. [Concomitant]
     Active Substance: RANITIDINE
     Indication: UPPER GASTROINTESTINAL HAEMORRHAGE
     Dosage: 50 MG, QD
     Route: 041
     Dates: start: 20160624, end: 20160624
  10. PACLITAXEL. [Suspect]
     Active Substance: PACLITAXEL
     Indication: MALIGNANT PERITONEAL NEOPLASM
     Dosage: 260 MG, CYCLE
     Route: 041
     Dates: start: 20160624, end: 20160624
  11. AVASTIN [Suspect]
     Active Substance: BEVACIZUMAB
     Indication: MALIGNANT PERITONEAL NEOPLASM
     Dosage: 830 MG, CYCLE
     Route: 041
     Dates: start: 20160624, end: 20160624
  12. CARBOPLATIN MYLAN [Suspect]
     Active Substance: CARBOPLATIN
     Dosage: 450 MG, CYCLE
     Route: 041
     Dates: start: 20160825, end: 20160825
  13. GRANISETRON [Concomitant]
     Active Substance: GRANISETRON
     Indication: PREMEDICATION
     Dosage: 1 MG, QD
     Route: 041
     Dates: start: 20160624, end: 20160624
  14. AMALUET [Concomitant]
     Indication: HYPERTENSION
     Dosage: 1 DF, QD
     Route: 048
  15. LOXOPROFEN [Concomitant]
     Active Substance: LOXOPROFEN
     Indication: BACK PAIN
     Dosage: 60 MG, TID
     Route: 048
     Dates: start: 20160526

REACTIONS (2)
  - Renal infarct [Recovering/Resolving]
  - Arterial thrombosis [Recovering/Resolving]

NARRATIVE: CASE EVENT DATE: 20160701
